FAERS Safety Report 16849906 (Version 3)
Quarter: 2021Q2

REPORT INFORMATION
  Report Type: Spontaneous
  Country: US (occurrence: US)
  Receive Date: 20190925
  Receipt Date: 20210512
  Transmission Date: 20210716
  Serious: Yes (Other)
  Sender: FDA-Public Use
  Company Number: US-GILEAD-2019-0429636

PATIENT
  Age: 36 Year
  Sex: Female
  Weight: 121.09 kg

DRUGS (47)
  1. SENSIPAR [Concomitant]
     Active Substance: CINACALCET HYDROCHLORIDE
  2. DELESTROGEN [Concomitant]
     Active Substance: ESTRADIOL VALERATE
  3. HEPARIN [Concomitant]
     Active Substance: HEPARIN SODIUM
  4. MYCOPHENOLIC ACID. [Concomitant]
     Active Substance: MYCOPHENOLIC ACID
  5. OXYCODONE AND ACETAMINOPHEN [Concomitant]
     Active Substance: ACETAMINOPHEN\OXYCODONE HYDROCHLORIDE
  6. RENVELA [Concomitant]
     Active Substance: SEVELAMER CARBONATE
  7. NEPHRO?VITE RX [Concomitant]
  8. FAMOTIDINE. [Concomitant]
     Active Substance: FAMOTIDINE
  9. DIPHENHYDRAMINE. [Concomitant]
     Active Substance: DIPHENHYDRAMINE
  10. DIAZEPAM. [Concomitant]
     Active Substance: DIAZEPAM
  11. NUCYNTA [Concomitant]
     Active Substance: TAPENTADOL HYDROCHLORIDE
  12. ELIQUIS [Concomitant]
     Active Substance: APIXABAN
  13. HYDROCHLOROTHIAZIDE. [Concomitant]
     Active Substance: HYDROCHLOROTHIAZIDE
  14. TEMAZEPAM. [Concomitant]
     Active Substance: TEMAZEPAM
  15. CLINDAMYCIN. [Concomitant]
     Active Substance: CLINDAMYCIN
  16. ZOLPIDEM [Concomitant]
     Active Substance: ZOLPIDEM TARTRATE
  17. VITAMIN D 2000 [Concomitant]
     Active Substance: VITAMIN D NOS
  18. DAPSONE. [Concomitant]
     Active Substance: DAPSONE
  19. NEVIRAPINE. [Concomitant]
     Active Substance: NEVIRAPINE
  20. SEVELAMER [Concomitant]
     Active Substance: SEVELAMER
  21. AMOXICILLIN + CLAVULANIC ACID [Concomitant]
     Active Substance: AMOXICILLIN\CLAVULANIC ACID
  22. VIREAD [Suspect]
     Active Substance: TENOFOVIR DISOPROXIL FUMARATE
     Indication: HIV INFECTION
     Dosage: UNK
     Route: 048
     Dates: start: 2004, end: 20180827
  23. ODEFSEY [Concomitant]
     Active Substance: EMTRICITABINE\RILPIVIRINE HYDROCHLORIDE\TENOFOVIR ALAFENAMIDE FUMARATE
  24. EPIVIR [Concomitant]
     Active Substance: LAMIVUDINE
  25. ESTRADIOL. [Concomitant]
     Active Substance: ESTRADIOL
  26. CYCLOBENZAPRINE. [Concomitant]
     Active Substance: CYCLOBENZAPRINE
  27. AMMONIUM LACTATE. [Concomitant]
     Active Substance: AMMONIUM LACTATE
  28. BENZONATATE. [Concomitant]
     Active Substance: BENZONATATE
  29. VIRTUSSIN AC [Concomitant]
     Active Substance: CODEINE PHOSPHATE\GUAIFENESIN
  30. PENTOXIFYLLINE. [Concomitant]
     Active Substance: PENTOXIFYLLINE
  31. LAMIVUDINE. [Concomitant]
     Active Substance: LAMIVUDINE
  32. MIDODRINE [Concomitant]
     Active Substance: MIDODRINE
  33. FUROSEMIDE. [Concomitant]
     Active Substance: FUROSEMIDE
  34. AMOXICILLIN. [Concomitant]
     Active Substance: AMOXICILLIN
  35. PREDNISONE. [Concomitant]
     Active Substance: PREDNISONE
  36. WARFARIN [Concomitant]
     Active Substance: WARFARIN
  37. CEFDINIR. [Concomitant]
     Active Substance: CEFDINIR
  38. LORATADINE. [Concomitant]
     Active Substance: LORATADINE
  39. VEMLIDY [Concomitant]
     Active Substance: TENOFOVIR ALAFENAMIDE FUMARATE
  40. ALPRAZOLAM. [Concomitant]
     Active Substance: ALPRAZOLAM
  41. SULFAMETH/TRIMETH [Concomitant]
     Active Substance: SULFAMETHOXAZOLE\TRIMETHOPRIM
  42. VIRAMUNE [Concomitant]
     Active Substance: NEVIRAPINE
  43. ROSUVASTATIN. [Concomitant]
     Active Substance: ROSUVASTATIN
  44. NORTRIPTYLINE [Concomitant]
     Active Substance: NORTRIPTYLINE
  45. CEPHALEXIN [CEFALEXIN] [Concomitant]
     Active Substance: CEPHALEXIN
  46. CALCITROL [CALCITRIOL] [Concomitant]
     Active Substance: CALCITRIOL
  47. CIPROFLOXACIN. [Concomitant]
     Active Substance: CIPROFLOXACIN

REACTIONS (13)
  - End stage renal disease [Not Recovered/Not Resolved]
  - Renal failure [Unknown]
  - Loss of personal independence in daily activities [Not Recovered/Not Resolved]
  - Renal transplant [Unknown]
  - Fatigue [Not Recovered/Not Resolved]
  - Emotional distress [Not Recovered/Not Resolved]
  - Decreased activity [Not Recovered/Not Resolved]
  - Anxiety [Not Recovered/Not Resolved]
  - Congenital cystic kidney disease [Unknown]
  - Quality of life decreased [Not Recovered/Not Resolved]
  - Economic problem [Not Recovered/Not Resolved]
  - Pain [Not Recovered/Not Resolved]
  - Anhedonia [Not Recovered/Not Resolved]

NARRATIVE: CASE EVENT DATE: 2008
